FAERS Safety Report 5392172-X (Version None)
Quarter: 2007Q3

REPORT INFORMATION
  Report Type: 
  Country: None (occurrence: None)
  Receive Date: 20070720
  Receipt Date: 20070717
  Transmission Date: 20080115
  Serious: Yes (Death, Disabling, Other)
  Sender: FDA-Public Use
  Company Number: US-BAYER-200712088BWH

PATIENT
  Age: 51 Year
  Sex: Male

DRUGS (5)
  1. NEXAVAR [Suspect]
     Indication: HEPATIC NEOPLASM MALIGNANT
     Dosage: TOTAL DAILY DOSE: 800 MG  UNIT DOSE: 200 MG
     Route: 048
     Dates: start: 20070617, end: 20070601
  2. MORPHINE [Concomitant]
  3. STOOL SOFTENER [Concomitant]
  4. PROTEIN DRINKS [Concomitant]
  5. WATER PILL [Concomitant]

REACTIONS (7)
  - ABASIA [None]
  - ASTHENIA [None]
  - DECREASED APPETITE [None]
  - FATIGUE [None]
  - HEPATIC NEOPLASM MALIGNANT [None]
  - NAUSEA [None]
  - VOMITING [None]
